FAERS Safety Report 4747121-1 (Version None)
Quarter: 2005Q3

REPORT INFORMATION
  Report Type: 
  Country: None (occurrence: None)
  Receive Date: 20050815
  Receipt Date: 20050801
  Transmission Date: 20060218
  Serious: Yes (Hospitalization, Other)
  Sender: FDA-Public Use
  Company Number: US_0505116730

PATIENT
  Age: 40 Year
  Sex: Female

DRUGS (7)
  1. ZYPREXA [Suspect]
     Indication: DEPRESSION
     Dosage: 15 MG/1 AT BEDTIME
     Dates: start: 20030828, end: 20030902
  2. PAXIL [Concomitant]
  3. XANAX [Concomitant]
  4. PREVACID [Concomitant]
  5. ZANAFLEX [Concomitant]
  6. BEXTRA [Concomitant]
  7. SYNTHROID [Concomitant]

REACTIONS (4)
  - CHEST PAIN [None]
  - CHOLELITHIASIS [None]
  - DIABETES MELLITUS NON-INSULIN-DEPENDENT [None]
  - PANCREATITIS [None]
